FAERS Safety Report 20171684 (Version 1)
Quarter: 2021Q4

REPORT INFORMATION
  Report Type: Spontaneous
  Country: US (occurrence: US)
  Receive Date: 20211210
  Receipt Date: 20211210
  Transmission Date: 20220303
  Serious: No
  Sender: FDA-Public Use
  Company Number: US-NKFPHARMA-2021MPSPO00064

PATIENT
  Age: 45 Year
  Sex: Male
  Weight: 72 kg

DRUGS (1)
  1. HEPARIN SODIUM [Suspect]
     Active Substance: HEPARIN SODIUM
     Indication: Anticoagulant therapy
     Route: 065
     Dates: start: 20211019, end: 20211019

REACTIONS (1)
  - Drug level below therapeutic [Unknown]

NARRATIVE: CASE EVENT DATE: 20211019
